FAERS Safety Report 25520737 (Version 1)
Quarter: 2025Q3

REPORT INFORMATION
  Report Type: Spontaneous
  Country: US (occurrence: US)
  Receive Date: 20250705
  Receipt Date: 20250705
  Transmission Date: 20251021
  Serious: No
  Sender: SANOFI AVENTIS
  Company Number: US-SA-2025SA189327

PATIENT
  Sex: Male
  Weight: 100 kg

DRUGS (9)
  1. CERDELGA [Suspect]
     Active Substance: ELIGLUSTAT
     Indication: Gaucher^s disease
     Dosage: 84.000MG QD
     Route: 048
  2. LEVOCETIRIZINE DIHYDROCHLORIDE [Concomitant]
     Active Substance: LEVOCETIRIZINE DIHYDROCHLORIDE
  3. ESCITALOPRAM OXALATE [Concomitant]
     Active Substance: ESCITALOPRAM OXALATE
  4. TACROLIMUS [Concomitant]
     Active Substance: TACROLIMUS
  5. BUPROPION [Concomitant]
     Active Substance: BUPROPION
  6. BETAMETHASONE DIPROPIONATE [Concomitant]
     Active Substance: BETAMETHASONE DIPROPIONATE
  7. NYSTATIN [Concomitant]
     Active Substance: NYSTATIN
  8. VITAMIN B [Concomitant]
     Active Substance: VITAMIN B
  9. VITAMIN D3 [Concomitant]
     Active Substance: CHOLECALCIFEROL

REACTIONS (1)
  - Hypersensitivity [Unknown]
